FAERS Safety Report 5926937-X (Version None)
Quarter: 2008Q4

REPORT INFORMATION
  Report Type: 
  Country: None (occurrence: None)
  Receive Date: 20081021
  Receipt Date: 20081021
  Transmission Date: 20090506
  Serious: Yes (Life-Threatening)
  Sender: FDA-Public Use
  Company Number: None

PATIENT
  Age: 62 Year
  Sex: Female
  Weight: 63.05 kg

DRUGS (1)
  1. AVELOX [Suspect]
     Indication: SINUSITIS
     Dosage: 1 24 HOURS
     Dates: start: 20061020, end: 20061021

REACTIONS (21)
  - ASTHENIA [None]
  - CHEST PAIN [None]
  - CHILLS [None]
  - DYSPNOEA [None]
  - EYE SWELLING [None]
  - FATIGUE [None]
  - FEELING ABNORMAL [None]
  - FEELING COLD [None]
  - FEELING HOT [None]
  - HEART RATE INCREASED [None]
  - HYPERHIDROSIS [None]
  - HYPOTHYROIDISM [None]
  - ILL-DEFINED DISORDER [None]
  - MALAISE [None]
  - NIGHTMARE [None]
  - OEDEMA PERIPHERAL [None]
  - PHOTOSENSITIVITY REACTION [None]
  - SKIN DISORDER [None]
  - THYROID DISORDER [None]
  - THYROIDITIS [None]
  - WEIGHT DECREASED [None]
